FAERS Safety Report 9152732 (Version 1)
Quarter: 2013Q1

REPORT INFORMATION
  Report Type: Spontaneous
  Country: US (occurrence: US)
  Receive Date: 20130308
  Receipt Date: 20130308
  Transmission Date: 20140127
  Serious: Yes (Other)
  Sender: FDA-Public Use
  Company Number: US-009507513-1303USA001830

PATIENT
  Age: 22 Year
  Sex: Male

DRUGS (7)
  1. SINGULAIR [Suspect]
  2. HYDROXYZINE PAMOATE [Concomitant]
     Dosage: UNKNOWN
  3. HYDROXYZINE PAMOATE [Concomitant]
     Dosage: UNKNOWN
  4. HYDROXYZINE PAMOATE [Concomitant]
     Dosage: UNKNOWN
  5. CETIRIZINE HYDROCHLORIDE [Concomitant]
     Dosage: UNKNOWN
  6. CETIRIZINE HYDROCHLORIDE [Concomitant]
     Dosage: UNKNOWN
  7. CETIRIZINE HYDROCHLORIDE [Concomitant]
     Dosage: UNKNOWN

REACTIONS (1)
  - Urticaria [Unknown]
